FAERS Safety Report 4337395-3 (Version None)
Quarter: 2004Q2

REPORT INFORMATION
  Report Type: 
  Country: None (occurrence: None)
  Receive Date: 20040412
  Receipt Date: 20040412
  Transmission Date: 20050107
  Serious: Yes (Life-Threatening, Hospitalization, Disabling)
  Sender: FDA-Public Use
  Company Number: None

PATIENT
  Age: 74 Year
  Sex: Male
  Weight: 77.1115 kg

DRUGS (3)
  1. ALTOCOR [Suspect]
     Indication: CORONARY ARTERY DISEASE
     Dosage: 60 MG DAILY ORAL
     Route: 048
     Dates: start: 20040401, end: 20040404
  2. ALTOCOR [Suspect]
     Indication: HYPERLIPIDAEMIA
     Dosage: 60 MG DAILY ORAL
     Route: 048
     Dates: start: 20040401, end: 20040404
  3. AMIODARONE HCL [Concomitant]

REACTIONS (3)
  - HEPATIC FAILURE [None]
  - MYOSITIS [None]
  - RHABDOMYOLYSIS [None]
